FAERS Safety Report 7577269-8 (Version None)
Quarter: 2011Q2

REPORT INFORMATION
  Report Type: 
  Country: None (occurrence: None)
  Receive Date: 20110628
  Receipt Date: 20110515
  Transmission Date: 20111010
  Serious: No
  Sender: FDA-Public Use
  Company Number: US-BAYER-2011-043851

PATIENT

DRUGS (2)
  1. VICODIN [Suspect]
  2. ALEVE (CAPLET) [Suspect]

REACTIONS (1)
  - EUPHORIC MOOD [None]
